FAERS Safety Report 9400377 (Version 1)
Quarter: 2013Q3

REPORT INFORMATION
  Report Type: Spontaneous
  Country: KR (occurrence: None)
  Receive Date: 20130711
  Receipt Date: 20130711
  Transmission Date: 20140515
  Serious: Yes (Other)
  Sender: FDA-Public Use
  Company Number: FK201302342

PATIENT
  Age: 68 Year
  Sex: Male

DRUGS (5)
  1. VALPROATE (MANUFACTURER UNKNOWN) (VALPROATE SODIUM) (VALPROATE SODIUM) [Suspect]
     Indication: DYSKINESIA
  2. ERTAPENEM (ERTAPENEM) [Suspect]
     Indication: PNEUMONIA
     Dosage: INTRAVENOUS (NOT OTHERWISE SPECIFIED)?
  3. VANCOMYCIN (VANCOMYCIN) [Concomitant]
  4. LORAZEPAM (LORAZEPAM) [Concomitant]
  5. MEROPENEM (MEROPENEM) [Concomitant]

REACTIONS (4)
  - Anticonvulsant drug level decreased [None]
  - Drug interaction [None]
  - Rash [None]
  - Tremor [None]
